FAERS Safety Report 4730542-0 (Version None)
Quarter: 2005Q3

REPORT INFORMATION
  Report Type: 
  Country: None (occurrence: None)
  Receive Date: 20050801
  Receipt Date: 20050725
  Transmission Date: 20060218
  Serious: Yes (Death, Hospitalization)
  Sender: FDA-Public Use
  Company Number: US-ABBOTT-05P-163-0306458-00

PATIENT
  Sex: Male

DRUGS (1)
  1. HUMIRA [Suspect]
     Indication: RHEUMATOID ARTHRITIS
     Route: 058
     Dates: start: 20040101, end: 20050701

REACTIONS (1)
  - PNEUMONIA [None]
